FAERS Safety Report 6665502-6 (Version None)
Quarter: 2010Q2

REPORT INFORMATION
  Report Type: 
  Country: None (occurrence: None)
  Receive Date: 20100402
  Receipt Date: 20100329
  Transmission Date: 20101027
  Serious: Yes (Death, Life-Threatening, Hospitalization)
  Sender: FDA-Public Use
  Company Number: US-PFIZER INC-2010040366

PATIENT
  Sex: Male

DRUGS (10)
  1. IRINOTECAN HYDROCHLORIDE [Suspect]
     Indication: COLORECTAL CANCER
     Dosage: 220 MG, QW
     Route: 042
     Dates: start: 20100210, end: 20100218
  2. IRINOTECAN HYDROCHLORIDE [Suspect]
     Dosage: 167 MG, QW
     Route: 042
     Dates: start: 20100303, end: 20100303
  3. CETUXIMAB [Suspect]
     Indication: COLORECTAL CANCER
     Dosage: 400 MG/M2 X1
     Route: 042
     Dates: start: 20100210, end: 20100210
  4. CETUXIMAB [Suspect]
     Dosage: 250 MG/M2
     Route: 042
     Dates: end: 20100310
  5. CARAFATE [Concomitant]
     Dosage: UNK
  6. SYNTHROID [Concomitant]
     Dosage: UNK
  7. ALDACTONE [Concomitant]
     Dosage: UNK
  8. DIGOXIN [Concomitant]
     Dosage: UNK
  9. LASIX [Concomitant]
  10. VICODIN [Concomitant]

REACTIONS (3)
  - FEBRILE NEUTROPENIA [None]
  - PNEUMONIA [None]
  - SEPSIS [None]
